FAERS Safety Report 4962101-9 (Version None)
Quarter: 2006Q1

REPORT INFORMATION
  Report Type: 
  Country: None (occurrence: None)
  Receive Date: 20060329
  Receipt Date: 20060317
  Transmission Date: 20060701
  Serious: Yes (Other)
  Sender: FDA-Public Use
  Company Number: 2006030044

PATIENT
  Age: 45 Year
  Sex: Male
  Weight: 103.4201 kg

DRUGS (2)
  1. VISINE-A [Suspect]
     Indication: DRY EYE
     Dosage: 1 DROP IN EACH EYE ONCE, OPHTHALMIC
     Route: 047
     Dates: start: 20060302, end: 20060302
  2. ESOMPERAZOLE [Concomitant]

REACTIONS (5)
  - CHEMICAL INJURY [None]
  - EYE IRRITATION [None]
  - FOREIGN BODY SENSATION IN EYES [None]
  - OCULAR HYPERAEMIA [None]
  - PHOTOSENSITIVITY REACTION [None]
